FAERS Safety Report 4818103-6 (Version None)
Quarter: 2005Q4

REPORT INFORMATION
  Report Type: 
  Country: None (occurrence: None)
  Receive Date: 20051102
  Receipt Date: 20051027
  Transmission Date: 20060501
  Serious: Yes (Death)
  Sender: FDA-Public Use
  Company Number: BE-GLAXOSMITHKLINE-B0398762A

PATIENT
  Age: 52 Year
  Sex: Male

DRUGS (3)
  1. ZYBAN [Suspect]
     Indication: DRUG USE FOR UNKNOWN INDICATION
     Route: 048
  2. BENZODIAZEPINE [Concomitant]
  3. ANTIDEPRESSANT [Concomitant]

REACTIONS (1)
  - COMPLETED SUICIDE [None]
